FAERS Safety Report 14150834 (Version 1)
Quarter: 2017Q4

REPORT INFORMATION
  Report Type: Spontaneous
  Country: BR (occurrence: BR)
  Receive Date: 20171102
  Receipt Date: 20171102
  Transmission Date: 20180321
  Serious: Yes (Hospitalization, Other)
  Sender: FDA-Public Use
  Company Number: BR-ROCHE-2013415

PATIENT
  Age: 44 Year
  Sex: Female

DRUGS (12)
  1. WARFARIN [Interacting]
     Active Substance: WARFARIN
     Indication: PRODUCT USED FOR UNKNOWN INDICATION
     Dosage: CYCLE OF 1/2
     Route: 065
  2. LOPERAMIDE [Concomitant]
     Active Substance: LOPERAMIDE
     Route: 065
  3. XELODA [Interacting]
     Active Substance: CAPECITABINE
     Route: 065
  4. ONDANSETRON [Concomitant]
     Active Substance: ONDANSETRON
     Route: 065
  5. PREGABALIN. [Concomitant]
     Active Substance: PREGABALIN
     Route: 065
  6. XELODA [Interacting]
     Active Substance: CAPECITABINE
     Route: 065
  7. LAMIVUDINE. [Concomitant]
     Active Substance: LAMIVUDINE
     Indication: HEPATITIS B
     Route: 065
  8. LEVOTHYROXINE. [Concomitant]
     Active Substance: LEVOTHYROXINE
     Route: 065
  9. XELODA [Interacting]
     Active Substance: CAPECITABINE
     Route: 065
  10. XELODA [Interacting]
     Active Substance: CAPECITABINE
     Route: 065
  11. XELODA [Suspect]
     Active Substance: CAPECITABINE
     Indication: BREAST CANCER METASTATIC
     Route: 065
  12. DIMENHYDRINATE. [Concomitant]
     Active Substance: DIMENHYDRINATE
     Dosage: 1 TABLET/DAY
     Route: 065

REACTIONS (4)
  - Diarrhoea [Recovered/Resolved]
  - Hypovolaemic shock [Recovered/Resolved]
  - Drug interaction [Unknown]
  - Prothrombin time prolonged [Recovered/Resolved]
